FAERS Safety Report 11376344 (Version 3)
Quarter: 2016Q3

REPORT INFORMATION
  Report Type: Spontaneous
  Country: JP (occurrence: JP)
  Receive Date: 20150813
  Receipt Date: 20160809
  Transmission Date: 20161109
  Serious: Yes (Death)
  Sender: FDA-Public Use
  Company Number: JP-MALLINCKRODT-T201503805

PATIENT
  Age: 47 Year
  Sex: Male
  Weight: 58 kg

DRUGS (26)
  1. CALONAL [Concomitant]
     Active Substance: ACETAMINOPHEN
     Dosage: 3000 MG
     Route: 048
     Dates: start: 20150410, end: 20150429
  2. RINESTERON [Concomitant]
     Active Substance: BETAMETHASONE
     Indication: ANALGESIC THERAPY
     Dosage: 3 MG
     Route: 048
     Dates: start: 20150324, end: 20150429
  3. MAGMITT [Concomitant]
     Active Substance: MAGNESIUM OXIDE
     Dosage: 990 MG
     Route: 048
  4. MAGMITT [Concomitant]
     Active Substance: MAGNESIUM OXIDE
     Dosage: 1980 MG
     Route: 048
     Dates: end: 20150429
  5. SEDIEL [Concomitant]
     Active Substance: TANDOSPIRONE
     Dosage: 5 MG
     Route: 048
     Dates: end: 20150429
  6. METHADONE [Suspect]
     Active Substance: METHADONE HYDROCHLORIDE
     Dosage: 40 MG DAILY DOSE
     Route: 048
     Dates: start: 20150120, end: 20150213
  7. NEXIUM [Concomitant]
     Active Substance: ESOMEPRAZOLE MAGNESIUM
     Dosage: 20 MG
     Route: 048
     Dates: end: 20150429
  8. LAMICTAL [Concomitant]
     Active Substance: LAMOTRIGINE
     Dosage: 100 MG
     Route: 048
     Dates: end: 20150429
  9. METHADONE [Suspect]
     Active Substance: METHADONE HYDROCHLORIDE
     Dosage: 20 MG, (60 MG DAILY DOSE)
     Route: 048
     Dates: end: 20150420
  10. LIORESAL [Concomitant]
     Active Substance: BACLOFEN
     Dosage: 15 MG
     Route: 048
     Dates: start: 20150408, end: 20150420
  11. METHADONE [Suspect]
     Active Substance: METHADONE HYDROCHLORIDE
     Indication: CANCER PAIN
     Dosage: 10 MG (30 MG DAILY DOSE)
     Route: 048
     Dates: start: 20150109, end: 20150119
  12. METHADONE [Suspect]
     Active Substance: METHADONE HYDROCHLORIDE
     Dosage: 50 MG DAILY DOSE
     Route: 048
     Dates: start: 20150225, end: 20150304
  13. ZOLPIDEM [Concomitant]
     Active Substance: ZOLPIDEM\ZOLPIDEM TARTRATE
     Dosage: 5 MG
     Route: 048
     Dates: start: 20150406, end: 20150420
  14. METHADONE [Suspect]
     Active Substance: METHADONE HYDROCHLORIDE
     Dosage: 15 MG, (45MG DAILY DOSE)
     Route: 048
     Dates: start: 20150428, end: 20150430
  15. LINOLOSAL [Suspect]
     Active Substance: BETAMETHASONE SODIUM PHOSPHATE
     Indication: ANALGESIC THERAPY
     Dosage: 4 MG DAILY DOSE
     Route: 051
     Dates: start: 20150305, end: 20150323
  16. LYRICA [Concomitant]
     Active Substance: PREGABALIN
     Dosage: 300 MG
     Route: 048
     Dates: end: 20150429
  17. METHADONE [Suspect]
     Active Substance: METHADONE HYDROCHLORIDE
     Dosage: 15 MG (45 MG DAILY DOSE)
     Route: 048
     Dates: start: 20150214, end: 20150224
  18. METHADONE [Suspect]
     Active Substance: METHADONE HYDROCHLORIDE
     Dosage: 50 MG DAILY DOSE
     Route: 048
     Dates: start: 20150305, end: 20150406
  19. METHADONE [Suspect]
     Active Substance: METHADONE HYDROCHLORIDE
     Dosage: 25 MG, (75 MG DAILY DOSE)
     Route: 048
     Dates: start: 20150421, end: 20150427
  20. OXINORM [Concomitant]
     Active Substance: OXYCODONE HYDROCHLORIDE
     Indication: ANALGESIC THERAPY
     Dosage: 10 MG PRN
     Route: 048
     Dates: start: 20150108
  21. REFLEX [Concomitant]
     Active Substance: MIRTAZAPINE
     Dosage: 15 MG
     Route: 048
     Dates: end: 20150429
  22. LIMAS [Concomitant]
     Active Substance: LITHIUM CARBONATE
     Dosage: 100 MG
     Route: 048
  23. LIMAS [Concomitant]
     Active Substance: LITHIUM CARBONATE
     Dosage: 100 MG
     Route: 048
     Dates: end: 20150429
  24. LOXOPROFEN [Concomitant]
     Active Substance: LOXOPROFEN
     Dosage: 180 MG
     Route: 048
     Dates: end: 20150429
  25. SEDIEL [Concomitant]
     Active Substance: TANDOSPIRONE
     Dosage: 20 MG
     Route: 048
  26. BROTIZOLAM [Concomitant]
     Active Substance: BROTIZOLAM
     Dosage: 0.25 MG
     Route: 048
     Dates: start: 20150414, end: 20150420

REACTIONS (6)
  - Hepatic function abnormal [Not Recovered/Not Resolved]
  - Amylase increased [Not Recovered/Not Resolved]
  - Condition aggravated [None]
  - Hypomagnesaemia [Recovered/Resolved]
  - Lung neoplasm malignant [Fatal]
  - Malignant neoplasm progression [None]

NARRATIVE: CASE EVENT DATE: 20150121
